FAERS Safety Report 10890955 (Version 4)
Quarter: 2015Q3

REPORT INFORMATION
  Report Type: Spontaneous
  Country: IL (occurrence: IL)
  Receive Date: 20150305
  Receipt Date: 20150814
  Transmission Date: 20151125
  Serious: Yes (Other)
  Sender: FDA-Public Use
  Company Number: IL-PFIZER INC-2014166499

PATIENT
  Age: 58 Year
  Sex: Male

DRUGS (7)
  1. STOPIT [Concomitant]
  2. ZOFRAN [Concomitant]
     Active Substance: ONDANSETRON HYDROCHLORIDE
  3. GAVISCON [Concomitant]
     Active Substance: ALUMINUM HYDROXIDE\MAGNESIUM CARBONATE
  4. SUTENT [Suspect]
     Active Substance: SUNITINIB MALATE
     Indication: RENAL CELL CARCINOMA
     Dosage: 50 MG, 1X/DAY, SCHEME 4:2, CYCLIC, CUMULATIVE DOSE HARD TO ESTIMATE
     Route: 048
     Dates: start: 20130601
  5. ELTROXIN [Concomitant]
     Active Substance: LEVOTHYROXINE
     Indication: HYPOTHYROIDISM
  6. GASTRO [Concomitant]
  7. NORMITEN [Concomitant]
     Active Substance: ATENOLOL

REACTIONS (25)
  - Diarrhoea [Recovering/Resolving]
  - Pain of skin [Unknown]
  - Palmar-plantar erythrodysaesthesia syndrome [Recovering/Resolving]
  - Nausea [Recovering/Resolving]
  - Asthenia [Recovering/Resolving]
  - Musculoskeletal pain [Unknown]
  - Dyspepsia [Recovered/Resolved]
  - White blood cell count decreased [Not Recovered/Not Resolved]
  - Decreased appetite [Not Recovered/Not Resolved]
  - Skin hypertrophy [Not Recovered/Not Resolved]
  - Pain in extremity [Unknown]
  - Oesophageal stenosis [Unknown]
  - Cough [Unknown]
  - Skin papilloma [Not Recovered/Not Resolved]
  - Skin exfoliation [Recovering/Resolving]
  - Erythema [Recovered/Resolved]
  - Haemoglobin decreased [Not Recovered/Not Resolved]
  - Renal cell carcinoma [Unknown]
  - Abdominal pain upper [Recovering/Resolving]
  - Dry skin [Recovering/Resolving]
  - Blood pressure increased [Unknown]
  - Disease progression [Unknown]
  - Vomiting [Recovering/Resolving]
  - Pain of skin [Not Recovered/Not Resolved]
  - Blood thyroid stimulating hormone increased [Unknown]

NARRATIVE: CASE EVENT DATE: 20141229
